FAERS Safety Report 8445737-2 (Version None)
Quarter: 2012Q2

REPORT INFORMATION
  Report Type: 
  Country: None (occurrence: None)
  Receive Date: 20120618
  Receipt Date: 20120605
  Transmission Date: 20120825
  Serious: Yes (Death)
  Sender: FDA-Public Use
  Company Number: FR-GLAXOSMITHKLINE-B0797689A

PATIENT
  Sex: Male

DRUGS (5)
  1. AVANDAMET [Suspect]
     Indication: TYPE 2 DIABETES MELLITUS
     Route: 048
     Dates: start: 20061024, end: 20100922
  2. ASPIRIN [Concomitant]
     Indication: PRODUCT USED FOR UNKNOWN INDICATION
     Route: 048
     Dates: start: 20000101, end: 20090101
  3. STATINES [Concomitant]
     Indication: HYPERCHOLESTEROLAEMIA
     Dates: start: 20070220
  4. DIET [Concomitant]
     Indication: TYPE 2 DIABETES MELLITUS
  5. ANTI-HYPERTENSIVE [Concomitant]
     Indication: HYPERTENSION
     Dates: start: 20070220

REACTIONS (12)
  - PULMONARY EMBOLISM [None]
  - MYOCARDIAL INFARCTION [None]
  - MALAISE [None]
  - FALL [None]
  - FATIGUE [None]
  - DEATH [None]
  - SWELLING FACE [None]
  - ANEURYSM RUPTURED [None]
  - LOSS OF CONSCIOUSNESS [None]
  - HEART RATE IRREGULAR [None]
  - ABDOMINAL DISTENSION [None]
  - EYE SWELLING [None]
